FAERS Safety Report 6607786-6 (Version None)
Quarter: 2010Q1

REPORT INFORMATION
  Report Type: 
  Country: None (occurrence: None)
  Receive Date: 20100225
  Receipt Date: 20100225
  Transmission Date: 20100710
  Serious: Yes (Hospitalization, Other)
  Sender: FDA-Public Use
  Company Number: None

PATIENT
  Age: 63 Year
  Sex: Female
  Weight: 61.2356 kg

DRUGS (2)
  1. NIASPAN [Suspect]
     Indication: BLOOD CHOLESTEROL
     Dosage: 1 TABLET DAILY MOUTH
     Route: 048
     Dates: start: 20100209
  2. NIASPAN [Suspect]
     Indication: BLOOD CHOLESTEROL
     Dosage: 1 TABLET DAILY MOUTH
     Route: 048
     Dates: start: 20100214

REACTIONS (4)
  - DYSPHEMIA [None]
  - FEELING HOT [None]
  - GENERALISED ERYTHEMA [None]
  - TREMOR [None]
